FAERS Safety Report 11440459 (Version 1)
Quarter: 2015Q3

REPORT INFORMATION
  Report Type: Report from Study
  Country: AR (occurrence: AR)
  Receive Date: 20150901
  Receipt Date: 20150901
  Transmission Date: 20151125
  Serious: Yes (Other)
  Sender: FDA-Public Use
  Company Number: PHHY2015AR097452

PATIENT
  Sex: Male

DRUGS (3)
  1. EXFORGE [Suspect]
     Active Substance: AMLODIPINE BESYLATE\VALSARTAN
     Dosage: 1 DF (VALSARTAN 320 MG, AMLODIPINE 10 MG AND HYDROCHLOROTHIAZIDE 12.5 MG), QD
     Route: 048
  2. EXFORGE [Suspect]
     Active Substance: AMLODIPINE BESYLATE\VALSARTAN
     Indication: HYPERTENSION
     Dosage: 0.5 DF (VALSARTAN 320 MG, AMLODIPINE 10 MG AND HYDROCHLOROTHIAZIDE 25 MG), QD (IN THE EVENING)
     Route: 048
  3. EXFORGE [Suspect]
     Active Substance: AMLODIPINE BESYLATE\VALSARTAN
     Dosage: 1 DF (VALSARTAN 320 MG, AMLODIPINE 10 MG AND HYDROCHLOROTHIAZIDE 25 MG), UNK
     Route: 065

REACTIONS (7)
  - Abdominal pain upper [Unknown]
  - Cholelithiasis [Not Recovered/Not Resolved]
  - Pollakiuria [Unknown]
  - Abdominal discomfort [Unknown]
  - Proteinuria [Unknown]
  - Blood pressure increased [Recovered/Resolved]
  - Cholelithiasis migration [Not Recovered/Not Resolved]
